FAERS Safety Report 15391191 (Version 1)
Quarter: 2018Q3

REPORT INFORMATION
  Report Type: Spontaneous
  Country: US (occurrence: US)
  Receive Date: 20180917
  Receipt Date: 20180917
  Transmission Date: 20181010
  Serious: Yes (Other)
  Sender: FDA-Public Use
  Company Number: US-BAYER-2018-169690

PATIENT
  Age: 58 Year
  Sex: Male

DRUGS (2)
  1. XOFIGO [Suspect]
     Active Substance: RADIUM RA-223 DICHLORIDE
     Indication: METASTASES TO BONE
     Dosage: UNK (TOTAL OF 3 OR 4 INJECTIONS)
     Route: 042
  2. XOFIGO [Suspect]
     Active Substance: RADIUM RA-223 DICHLORIDE
     Indication: METASTASES TO BONE
     Dosage: 118.3 ML, ONCE (LAST INJECTION)
     Route: 042
     Dates: start: 20180814, end: 20180814

REACTIONS (1)
  - Fracture [None]

NARRATIVE: CASE EVENT DATE: 201808
